FAERS Safety Report 5350870-8 (Version None)
Quarter: 2007Q2

REPORT INFORMATION
  Report Type: 
  Country: None (occurrence: None)
  Receive Date: 20070608
  Receipt Date: 20070531
  Transmission Date: 20071010
  Serious: Yes (Hospitalization)
  Sender: FDA-Public Use
  Company Number: B0471170A

PATIENT
  Age: 60 Year
  Sex: Male
  Weight: 69 kg

DRUGS (8)
  1. GW679769 [Suspect]
     Dates: start: 20070430, end: 20070502
  2. ZOFRAN [Suspect]
     Dosage: 32MG SINGLE DOSE
     Route: 042
     Dates: start: 20070430, end: 20070430
  3. DEXAMETHASONE 0.5MG TAB [Suspect]
     Route: 048
     Dates: start: 20070430, end: 20070503
  4. METOCARD [Concomitant]
     Indication: HYPERTENSION
     Dosage: 25MG TWICE PER DAY
     Route: 048
     Dates: start: 20070427
  5. UNKNOWN MEDICATION [Concomitant]
     Indication: HYPERTENSION
     Dosage: 1.5MG PER DAY
     Route: 048
     Dates: start: 20070306
  6. INHIBACE [Concomitant]
     Indication: HYPERTENSION
     Dosage: .5MG PER DAY
     Route: 048
     Dates: start: 20070306
  7. POLPRAZOL [Concomitant]
     Indication: ABDOMINAL PAIN
     Dosage: 20MG TWICE PER DAY
     Route: 048
     Dates: start: 20070514, end: 20070514
  8. SODIUM CHLORIDE [Concomitant]
     Indication: FLUID REPLACEMENT
     Dosage: 500ML PER DAY
     Route: 042
     Dates: start: 20070515, end: 20070515

REACTIONS (4)
  - GASTRITIS [None]
  - HYPOKALAEMIA [None]
  - LEUKOPENIA [None]
  - NEUTROPENIA [None]
